FAERS Safety Report 7605658-1 (Version None)
Quarter: 2011Q3

REPORT INFORMATION
  Report Type: 
  Country: None (occurrence: None)
  Receive Date: 20110713
  Receipt Date: 20110630
  Transmission Date: 20111222
  Serious: Yes (Hospitalization)
  Sender: FDA-Public Use
  Company Number: JP-BAYER-2011-040743

PATIENT
  Age: 64 Year
  Sex: Female
  Weight: 38 kg

DRUGS (4)
  1. NEXAVAR [Suspect]
     Indication: HEPATIC NEOPLASM MALIGNANT
     Dosage: 400 MG, QD
     Route: 048
     Dates: start: 20110425, end: 20110429
  2. FENTANYL CITRATE [Concomitant]
     Indication: PAIN
     Dosage: DAILY DOSE 1 MG
     Route: 062
     Dates: start: 20110428, end: 20110429
  3. PROCHLORPERAZINE [Concomitant]
     Indication: NAUSEA
     Dosage: DAILY DOSE 15 MG
     Route: 048
     Dates: start: 20110428, end: 20110429
  4. LANSOPRAZOLE [Concomitant]
     Indication: ULCER
     Dosage: DAILY DOSE 30 MG
     Route: 048
     Dates: start: 20110428, end: 20110429

REACTIONS (3)
  - HEPATIC FUNCTION ABNORMAL [None]
  - ALTERED STATE OF CONSCIOUSNESS [None]
  - HEPATIC ENCEPHALOPATHY [None]
